FAERS Safety Report 8436508-1 (Version None)
Quarter: 2012Q2

REPORT INFORMATION
  Report Type: 
  Country: None (occurrence: None)
  Receive Date: 20120614
  Receipt Date: 20120604
  Transmission Date: 20120825
  Serious: Yes (Hospitalization)
  Sender: FDA-Public Use
  Company Number: US-GLAXOSMITHKLINE-A0978613A

PATIENT
  Age: 50 Year
  Sex: Male

DRUGS (11)
  1. FLOLAN [Suspect]
     Indication: PULMONARY ARTERIAL HYPERTENSION
     Dosage: 46NGKM CONTINUOUS
     Route: 042
     Dates: start: 20050324
  2. NORVASC [Concomitant]
  3. INSULIN [Concomitant]
  4. ATIVAN [Concomitant]
  5. COUMADIN [Concomitant]
  6. TRICOR [Concomitant]
  7. OXYGEN [Concomitant]
  8. CARDIZEM [Concomitant]
  9. REVATIO [Concomitant]
  10. POTASSIUM ACETATE [Concomitant]
  11. LASIX [Concomitant]

REACTIONS (4)
  - OEDEMA PERIPHERAL [None]
  - VENOUS OCCLUSION [None]
  - ARTERIAL STENOSIS [None]
  - DYSPNOEA [None]
